FAERS Safety Report 9736712 (Version 1)
Quarter: 2013Q4

REPORT INFORMATION
  Report Type: Spontaneous
  Country: US (occurrence: US)
  Receive Date: 20131206
  Receipt Date: 20131206
  Transmission Date: 20140711
  Serious: No
  Sender: FDA-Public Use
  Company Number: US-GILEAD-2009-0023960

PATIENT
  Age: 61 Year
  Sex: Male

DRUGS (13)
  1. LETAIRIS [Suspect]
     Indication: CHRONIC OBSTRUCTIVE PULMONARY DISEASE
     Route: 048
     Dates: start: 20090625
  2. ASPIRIN [Concomitant]
  3. LISINOPRIL [Concomitant]
  4. BACTRIM [Concomitant]
  5. VIAGRA [Concomitant]
  6. PREDNISONE [Concomitant]
  7. SIMVASTATIN [Concomitant]
  8. PRILOSEC [Concomitant]
  9. OSCAL [Concomitant]
  10. ACETYLCYSTEINE [Concomitant]
  11. CQ 10 [Concomitant]
  12. OMEGA 3 [Concomitant]
  13. NOSE DRIPS [Concomitant]

REACTIONS (1)
  - Local swelling [Not Recovered/Not Resolved]
